FAERS Safety Report 22813177 (Version 8)
Quarter: 2024Q1

REPORT INFORMATION
  Report Type: Report from Study
  Country: FI (occurrence: FI)
  Receive Date: 20230811
  Receipt Date: 20240207
  Transmission Date: 20240409
  Serious: Yes (Other)
  Sender: FDA-Public Use
  Company Number: FI-CELLTRION HEALTHCARE HUNGARY KFT-2023FI015190

PATIENT
  Age: 68 Year
  Sex: Female
  Weight: 45 kg

DRUGS (26)
  1. REMICADE [Suspect]
     Active Substance: INFLIXIMAB
     Indication: Rheumatoid arthritis
     Dosage: SUBJECT SIGNED ICF 29MAR23, AND WENT HOME WHERE THEY TOOK REMSIMA SC IN THE EVENING.
     Route: 058
     Dates: start: 20230329, end: 20230329
  2. REMICADE [Suspect]
     Active Substance: INFLIXIMAB
     Dosage: 120 MG, Q2WEEKS
     Route: 058
     Dates: start: 20230426, end: 20230426
  3. REMICADE [Suspect]
     Active Substance: INFLIXIMAB
     Dosage: 120 MG, Q2WEEKS
     Route: 058
     Dates: start: 20230412, end: 20230412
  4. REMICADE [Suspect]
     Active Substance: INFLIXIMAB
     Dosage: PATIENT POTENTIALLY TOOK REMSIMA A WEEK EARLY (MEANT TO TAKE EVERY TWO WEEKS)
     Route: 058
     Dates: start: 20230504, end: 20230504
  5. VAGIFEM [Concomitant]
     Active Substance: ESTRADIOL
     Indication: Hormone replacement therapy
     Dosage: 10 MICROGRAM, TWICE PER WEEK.
     Route: 067
     Dates: start: 20230308
  6. CHOLECALCIFEROL [Concomitant]
     Active Substance: CHOLECALCIFEROL
     Indication: Supplementation therapy
     Dosage: 50 MICROGRAM, QD
     Route: 048
     Dates: start: 2000
  7. METOPROLOL [Concomitant]
     Active Substance: METOPROLOL
     Indication: Atrial fibrillation
     Dosage: 23.75 MG DOSE - USED ALSO AS A PART OF TREATMENT FOR 04 LEFT VENTRICULAR INSUFFICIENCY
     Route: 048
     Dates: start: 20220804
  8. ELIQUIS [Concomitant]
     Active Substance: APIXABAN
     Indication: Aortic aneurysm
     Dosage: 2.5 MG DOSE
     Route: 048
     Dates: start: 20220803
  9. EBASTINE [Concomitant]
     Active Substance: EBASTINE
     Indication: Hypersensitivity
     Dosage: 10 MG, AS NEEDED, TAKEN AS NEEDED FOR ALLERGY SYMPTOM ALLEVIATION
     Route: 048
     Dates: start: 20180504
  10. GENTAMICIN [Concomitant]
     Active Substance: GENTAMICIN
     Indication: Endocarditis
     Dosage: 120 MG, QD
     Dates: start: 20230601, end: 20230616
  11. DESLORATADINE [Concomitant]
     Active Substance: DESLORATADINE
     Indication: Hypersensitivity
     Dosage: 5 MG, AS NEEDED, TAKEN AS NEEDED FOR ALLERGY SYMPTOM ALLEVIATION
     Route: 048
     Dates: start: 20191031
  12. BECLOMETHASONE DIPROPIONATE [Concomitant]
     Active Substance: BECLOMETHASONE DIPROPIONATE
     Indication: Hypersensitivity
     Dosage: 200 MICROGRAM, PRN (FORM: SPRAY)
     Route: 055
     Dates: start: 20170724
  13. AMPICILLIN SODIUM [Concomitant]
     Active Substance: AMPICILLIN SODIUM
     Indication: Endocarditis
     Dosage: 2 G, 6X PER DAY
     Dates: start: 20230601, end: 20230714
  14. ALBUTEROL [Concomitant]
     Active Substance: ALBUTEROL
     Indication: Hypersensitivity
     Dosage: 200 MICROGRAM, 1-4 TIMES PER DAY AS NEEDED. (FORM: SPRAY)
     Route: 055
     Dates: start: 20191121
  15. AMOXICILLIN [Concomitant]
     Active Substance: AMOXICILLIN
     Indication: Endocarditis
     Dosage: PATIENT STOPPED EATING THESE 25 JUL 23.
     Dates: start: 20230719, end: 20230725
  16. ASPIRIN [Concomitant]
     Active Substance: ASPIRIN
     Indication: Endocarditis
     Dosage: 100 MG, QD
     Dates: start: 20230612
  17. POTASSIUM CHLORIDE [Concomitant]
     Active Substance: POTASSIUM CHLORIDE
     Indication: Hypokalaemia
     Dosage: OCCASIONAL HYPOKALEMIA
     Route: 048
     Dates: start: 20220803, end: 20230714
  18. PANTOPRAZOLE [Concomitant]
     Active Substance: PANTOPRAZOLE
     Indication: Prophylaxis
     Dosage: 40 MG, QD
     Route: 048
     Dates: start: 20210422
  19. SIMVASTATIN [Concomitant]
     Active Substance: SIMVASTATIN
     Indication: Coronary artery disease
     Dosage: 20 MG, QD
     Route: 048
     Dates: start: 20230329
  20. ACETAMINOPHEN [Concomitant]
     Active Substance: ACETAMINOPHEN
     Indication: Rheumatoid arthritis
     Dosage: 1 G, TID
     Route: 048
     Dates: start: 20190904
  21. DINIT [DICLOFENAC SODIUM;NIMESULIDE] [Concomitant]
     Indication: Coronary artery disease
     Dosage: DOSE IS 1.2MG, STARTED AS PRECAUTION DUE TO PATIENT REPORTED SYMPTOMS PRIOR TO ACTUAL CAD DIAGNOSIS
     Route: 055
     Dates: start: 20221121
  22. IMOVANE [Concomitant]
     Active Substance: ZOPICLONE
     Indication: Insomnia
     Dosage: 7 MG, 1 TO 1.5 PILLS PER DAY AS NEEDED, DOSE IS 7.5MG HOWEVER THE ECRF DOES NOT ALLOW FOR DECIMALS
     Route: 048
     Dates: start: 20181112
  23. CLOPIDOGREL [Concomitant]
     Active Substance: CLOPIDOGREL BISULFATE
     Indication: Myocardial infarction
     Dosage: 75 MG, QD
     Route: 048
     Dates: start: 20220721
  24. METHYLPREDNISOLONE [Concomitant]
     Active Substance: METHYLPREDNISOLONE
     Indication: Rheumatoid arthritis
     Dosage: 4 MG, 1 PER DAY AND EVERY OTHER DAY HALF A PILL.
     Route: 048
     Dates: start: 20140327, end: 20230505
  25. METHYLPREDNISOLONE [Concomitant]
     Active Substance: METHYLPREDNISOLONE
     Dosage: 4 MG, 1 PER DAY AND EVERY OTHER DAY HALF A PILL.
     Route: 048
     Dates: start: 20230612
  26. ARAVA [Concomitant]
     Active Substance: LEFLUNOMIDE
     Indication: Rheumatoid arthritis
     Dosage: 20 MG, QD; 1 TAB PER DAY
     Route: 048
     Dates: start: 20230926

REACTIONS (1)
  - Urosepsis [Recovered/Resolved]

NARRATIVE: CASE EVENT DATE: 20230502
